FAERS Safety Report 6853394-1 (Version None)
Quarter: 2010Q3

REPORT INFORMATION
  Report Type: 
  Country: None (occurrence: None)
  Receive Date: 20100717
  Receipt Date: 20071206
  Transmission Date: 20110219
  Serious: No
  Sender: FDA-Public Use
  Company Number: US-PFIZER INC-2007104538

PATIENT
  Sex: Male
  Weight: 129.5 kg

DRUGS (2)
  1. CHANTIX [Suspect]
     Indication: SMOKING CESSATION THERAPY
     Dates: start: 20071101, end: 20071101
  2. HYDROCODONE [Concomitant]

REACTIONS (8)
  - ABDOMINAL DISTENSION [None]
  - BED REST [None]
  - GAIT DISTURBANCE [None]
  - GASTROINTESTINAL PAIN [None]
  - NAUSEA [None]
  - NIGHTMARE [None]
  - PAIN [None]
  - SOMNOLENCE [None]
